FAERS Safety Report 18397312 (Version 1)
Quarter: 2020Q4

REPORT INFORMATION
  Report Type: Spontaneous
  Country: FR (occurrence: FR)
  Receive Date: 20201019
  Receipt Date: 20201019
  Transmission Date: 20210114
  Serious: Yes (Other)
  Sender: FDA-Public Use
  Company Number: FR-GLAXOSMITHKLINE-FR2020204155

PATIENT
  Age: 33 Year
  Sex: Male

DRUGS (2)
  1. TRILEPTAL [Suspect]
     Active Substance: OXCARBAZEPINE
     Indication: PRODUCT ADMINISTRATION ERROR
     Dosage: 1200 MG, SINGLE
     Route: 048
     Dates: start: 20200809, end: 20200809
  2. LAMICTAL [Suspect]
     Active Substance: LAMOTRIGINE
     Indication: PRODUCT ADMINISTRATION ERROR
     Dosage: 400 MG, SINGLE
     Route: 048
     Dates: start: 20200809, end: 20200809

REACTIONS (7)
  - Incorrect dosage administered [Recovered/Resolved]
  - Somnolence [Recovered/Resolved]
  - Nausea [Recovered/Resolved]
  - Diplopia [Recovered/Resolved]
  - Product administration error [Recovered/Resolved]
  - Ataxia [Recovered/Resolved]
  - Vomiting [Recovered/Resolved]

NARRATIVE: CASE EVENT DATE: 20200809
